FAERS Safety Report 8390234-6 (Version None)
Quarter: 2012Q2

REPORT INFORMATION
  Report Type: 
  Country: None (occurrence: None)
  Receive Date: 20120529
  Receipt Date: 20120522
  Transmission Date: 20120825
  Serious: Yes (Other)
  Sender: FDA-Public Use
  Company Number: US-PFIZER INC-2012071268

PATIENT
  Sex: Female
  Weight: 69.841 kg

DRUGS (1)
  1. SUTENT [Suspect]
     Indication: AESTHESIONEUROBLASTOMA
     Dosage: 37.5 MG (12.5 MG X 3 CAPSULES) DAILY
     Route: 048
     Dates: start: 20120227, end: 20120308

REACTIONS (12)
  - FEBRILE NEUTROPENIA [None]
  - WHITE BLOOD CELL COUNT DECREASED [None]
  - VOMITING [None]
  - WEIGHT DECREASED [None]
  - NODULE [None]
  - SKIN DISORDER [None]
  - PLATELET COUNT DECREASED [None]
  - HYPERAESTHESIA [None]
  - OESOPHAGITIS [None]
  - NAUSEA [None]
  - RED BLOOD CELL COUNT DECREASED [None]
  - DERMATITIS CONTACT [None]
